FAERS Safety Report 18545369 (Version 1)
Quarter: 2020Q4

REPORT INFORMATION
  Report Type: Spontaneous
  Country: US (occurrence: US)
  Receive Date: 20201125
  Receipt Date: 20201125
  Transmission Date: 20210114
  Serious: Yes (Hospitalization)
  Sender: FDA-Public Use
  Company Number: None

PATIENT
  Age: 77 Year
  Sex: Female
  Weight: 56.7 kg

DRUGS (7)
  1. GEMCITABINE HYDROCHLORIDE. [Suspect]
     Active Substance: GEMCITABINE HYDROCHLORIDE
     Dates: end: 20201111
  2. ELIQUIS [Concomitant]
     Active Substance: APIXABAN
  3. LACTULOSE. [Concomitant]
     Active Substance: LACTULOSE
  4. SERALINE HCI [Concomitant]
  5. PACLITAXEL PROTEIN-BOUND PARTICLES (ALBUMIN-BOUND) [Suspect]
     Active Substance: PACLITAXEL
     Dates: end: 20201111
  6. FENTANYL TRANSDERMAL SYSTEM [Concomitant]
     Active Substance: FENTANYL
  7. MORPHINE SULFATE. [Concomitant]
     Active Substance: MORPHINE SULFATE

REACTIONS (6)
  - Pneumonia [None]
  - Ascites [None]
  - Sepsis [None]
  - Nausea [None]
  - Vomiting [None]
  - Diarrhoea [None]

NARRATIVE: CASE EVENT DATE: 20201113
